FAERS Safety Report 7020386-1 (Version None)
Quarter: 2010Q3

REPORT INFORMATION
  Report Type: 
  Country: None (occurrence: None)
  Receive Date: 20100927
  Receipt Date: 20100920
  Transmission Date: 20110219
  Serious: Yes (Hospitalization)
  Sender: FDA-Public Use
  Company Number: 017793

PATIENT
  Sex: Female
  Weight: 100.7 kg

DRUGS (14)
  1. CERTOLIZUMAB PEGOL [Suspect]
     Indication: RHEUMATOID ARTHRITIS
     Dosage: SEE IMAGE
     Route: 058
     Dates: end: 20090823
  2. CERTOLIZUMAB PEGOL [Suspect]
     Indication: RHEUMATOID ARTHRITIS
     Dosage: SEE IMAGE
     Route: 058
     Dates: start: 20091008, end: 20091105
  3. CERTOLIZUMAB PEGOL [Suspect]
     Indication: RHEUMATOID ARTHRITIS
     Dosage: SEE IMAGE
     Route: 058
     Dates: start: 20091119, end: 20091217
  4. PREDNISONE [Concomitant]
  5. ALEVE [Concomitant]
  6. DARVOCET-N 100 [Concomitant]
  7. FOLIC ACID [Concomitant]
  8. METOPROLOL [Concomitant]
  9. ZOCOR [Concomitant]
  10. DIGOXIN [Concomitant]
  11. ENALAPRIL MALEATE [Concomitant]
  12. CHROMIUM PICOLINATE [Concomitant]
  13. ASPIRIN [Concomitant]
  14. TORADOL [Concomitant]

REACTIONS (12)
  - BLOOD GLUCOSE INCREASED [None]
  - BLOOD PRESSURE INCREASED [None]
  - BLOOD SODIUM DECREASED [None]
  - DYSPNOEA [None]
  - DYSURIA [None]
  - HAEMOGLOBIN DECREASED [None]
  - HEADACHE [None]
  - OVARIAN CANCER [None]
  - OVARIAN NEOPLASM [None]
  - PELVIC PAIN [None]
  - PLATELET COUNT DECREASED [None]
  - UTERINE LEIOMYOMA [None]
